FAERS Safety Report 15544334 (Version 1)
Quarter: 2018Q4

REPORT INFORMATION
  Report Type: Spontaneous
  Country: US (occurrence: RU)
  Receive Date: 20181024
  Receipt Date: 20181024
  Transmission Date: 20190205
  Serious: Yes (Hospitalization, Other)
  Sender: FDA-Public Use
  Company Number: US-ASTELLAS-2018US045667

PATIENT
  Sex: Female
  Weight: 45 kg

DRUGS (3)
  1. GEMZAR [Suspect]
     Active Substance: GEMCITABINE HYDROCHLORIDE
     Indication: PRODUCT USED FOR UNKNOWN INDICATION
     Dosage: UNK, UNKNOWN FREQ.
     Route: 065
  2. ERLOTINIB [Suspect]
     Active Substance: ERLOTINIB
     Indication: PANCREATIC CARCINOMA METASTATIC
     Route: 065
     Dates: start: 2018
  3. ERLOTINIB [Suspect]
     Active Substance: ERLOTINIB
     Indication: METASTASES TO LIVER

REACTIONS (8)
  - Blood count abnormal [Unknown]
  - Gastric disorder [Unknown]
  - Discomfort [Unknown]
  - Palpitations [Unknown]
  - Dyspnoea [Unknown]
  - Blood pressure increased [Unknown]
  - Abdominal distension [Unknown]
  - Ascites [Unknown]
